FAERS Safety Report 6600283-3 (Version None)
Quarter: 2010Q1

REPORT INFORMATION
  Report Type: 
  Country: None (occurrence: None)
  Receive Date: 20100224
  Receipt Date: 20100209
  Transmission Date: 20100710
  Serious: Yes (Disabling, Other)
  Sender: FDA-Public Use
  Company Number: NO-PFIZER INC-2009193345

PATIENT
  Age: 55 Year
  Sex: Female

DRUGS (22)
  1. LIPITOR [Suspect]
     Indication: HYPERCHOLESTEROLAEMIA
     Dosage: 40 MG, 1X/DAY
     Route: 048
     Dates: start: 20050204, end: 20050711
  2. LESCOL [Suspect]
     Indication: HYPERCHOLESTEROLAEMIA
     Dosage: 20 MG/DAY
     Route: 048
     Dates: start: 20040123
  3. LESCOL [Suspect]
     Dosage: 40 MG/DAY
     Dates: start: 20040614
  4. LESCOL [Suspect]
     Dosage: 20 MG/DAY
     Dates: start: 20040803, end: 20050204
  5. ZANIDIP [Concomitant]
     Dosage: UNK
     Route: 048
     Dates: start: 20040102, end: 20040416
  6. MICARDIS [Concomitant]
     Dosage: 40 MG/80 MG
     Route: 048
     Dates: start: 20040102, end: 20041011
  7. MICARDIS [Concomitant]
     Dosage: 80 MG
     Dates: start: 20040823, end: 20041011
  8. AERIUS [Concomitant]
     Dosage: UNK
     Route: 048
     Dates: end: 20050101
  9. PULMICORT [Concomitant]
     Dosage: UNK
     Route: 055
  10. DIOVAN COMP [Concomitant]
     Dosage: 1 TAB/DAY
     Route: 048
     Dates: start: 20041011, end: 20050110
  11. KREDEX [Concomitant]
     Dosage: 12.5 MG, UNK
  12. KREDEX [Concomitant]
     Dosage: 12,5 MG/6,23 MG
     Dates: start: 20040803
  13. COZAAR [Concomitant]
     Dosage: 50 MG
     Dates: start: 20050425, end: 20050518
  14. NASACORT [Concomitant]
     Dosage: UNK
     Route: 045
  15. KLIOGEST [Concomitant]
     Dosage: 1 TAB/DAY
  16. COAPROVEL [Concomitant]
     Dosage: 300 MG, UNK
     Dates: start: 20050204
  17. COAPROVEL [Concomitant]
     Dosage: 150 MG, UNK
     Dates: start: 20050307, end: 20050426
  18. LIVOSTIN [Concomitant]
     Dosage: UNK
     Route: 045
  19. OLOPATADINE [Concomitant]
     Dosage: UNK
  20. MAGNESIUM [Concomitant]
     Dosage: 75 MG, UNK
     Dates: start: 20041108
  21. CLONIDINE HCL [Concomitant]
     Dosage: 25 UG X 2
     Dates: start: 20040319, end: 20040416
  22. CO-DIOVAN [Concomitant]
     Dosage: 1 TAB/DAY
     Dates: start: 20050118, end: 20050204

REACTIONS (34)
  - ALANINE AMINOTRANSFERASE INCREASED [None]
  - AREFLEXIA [None]
  - ARTHRALGIA [None]
  - ASPARTATE AMINOTRANSFERASE INCREASED [None]
  - BLOOD LACTATE DEHYDROGENASE INCREASED [None]
  - BLOOD PRESSURE INCREASED [None]
  - CARDIAC DISORDER [None]
  - CEREBROVASCULAR DISORDER [None]
  - DECREASED VIBRATORY SENSE [None]
  - FATIGUE [None]
  - FLUSHING [None]
  - GAIT DISTURBANCE [None]
  - GAMMOPATHY [None]
  - HEADACHE [None]
  - HYPERHIDROSIS [None]
  - HYPERTONIA [None]
  - HYPOAESTHESIA [None]
  - MITOCHONDRIAL CYTOPATHY [None]
  - MUSCLE ATROPHY [None]
  - MUSCULAR WEAKNESS [None]
  - MUSCULOSKELETAL STIFFNESS [None]
  - MYALGIA [None]
  - MYOPATHY [None]
  - PARAESTHESIA [None]
  - PERIPHERAL COLDNESS [None]
  - POLYNEUROPATHY [None]
  - PREMATURE MENOPAUSE [None]
  - QUALITY OF LIFE DECREASED [None]
  - RAYNAUD'S PHENOMENON [None]
  - RESTLESS LEGS SYNDROME [None]
  - SCLERODERMA [None]
  - SENSATION OF HEAVINESS [None]
  - SENSORY LOSS [None]
  - WEIGHT DECREASED [None]
